FAERS Safety Report 4588374-2 (Version None)
Quarter: 2005Q1

REPORT INFORMATION
  Report Type: 
  Country: None (occurrence: None)
  Receive Date: 20050216
  Receipt Date: 20050201
  Transmission Date: 20050727
  Serious: Yes (Hospitalization)
  Sender: FDA-Public Use
  Company Number: 2005SP000028

PATIENT
  Age: 62 Year
  Sex: Male

DRUGS (16)
  1. XOPENEX [Suspect]
     Dosage: INHALATION
     Route: 055
  2. TRACLEER [Suspect]
     Indication: PULMONARY HYPERTENSION
     Dosage: 125 MG; TWICE A DAY; ORAL
     Route: 048
     Dates: start: 20040901
  3. CYCLOSPORINE [Concomitant]
  4. OXYGEN [Concomitant]
  5. HYDRALAZINE [Concomitant]
  6. MAGNESIUM [Concomitant]
  7. POTASSIUM CHLORIDE [Concomitant]
  8. VITAMINS [Concomitant]
  9. SINGULAIR [Concomitant]
  10. ASPIRIN [Concomitant]
  11. DILTIAZEM [Concomitant]
  12. FLOMAX [Concomitant]
  13. MUCINEX [Concomitant]
  14. COMBIVENT [Concomitant]
  15. ATROVENT [Concomitant]
  16. PREDNISONE [Concomitant]

REACTIONS (2)
  - HYPERSENSITIVITY [None]
  - VIRAL INFECTION [None]
